FAERS Safety Report 5009204-0 (Version None)
Quarter: 2006Q2

REPORT INFORMATION
  Report Type: 
  Country: None (occurrence: None)
  Receive Date: 20060519
  Receipt Date: 20060505
  Transmission Date: 20061013
  Serious: Yes (Other)
  Sender: FDA-Public Use
  Company Number: 2006RR-02219

PATIENT
  Age: 21 Year
  Sex: Female

DRUGS (1)
  1. FLUOXETINE [Suspect]
     Indication: DEPRESSIVE SYMPTOM
     Dosage: 20 MG, ORAL
     Route: 048

REACTIONS (1)
  - MEMORY IMPAIRMENT [None]
